FAERS Safety Report 4394085-9 (Version None)
Quarter: 2004Q3

REPORT INFORMATION
  Report Type: 
  Country: None (occurrence: None)
  Receive Date: 20040708
  Receipt Date: 20040708
  Transmission Date: 20050211
  Serious: Yes (Hospitalization)
  Sender: FDA-Public Use
  Company Number: None

PATIENT
  Age: 22 Year
  Sex: Female

DRUGS (1)
  1. CLOMIPHENE CITRATE [Suspect]
     Indication: INFERTILITY
     Dosage: 50 MG QD D5-9 ALSO ON 100MG AT ONE POINT

REACTIONS (1)
  - OVARIAN HYPERSTIMULATION SYNDROME [None]
